FAERS Safety Report 21785844 (Version 2)
Quarter: 2023Q2

REPORT INFORMATION
  Report Type: Spontaneous
  Country: US (occurrence: US)
  Receive Date: 20221227
  Receipt Date: 20230505
  Transmission Date: 20230722
  Serious: No
  Sender: FDA-Public Use
  Company Number: US-drreddys-SPO/USA/22/0158040

PATIENT
  Age: 64 Year
  Sex: Male

DRUGS (1)
  1. NICOTINE [Suspect]
     Active Substance: NICOTINE
     Indication: Tobacco user
     Route: 062
     Dates: start: 20221201, end: 20221205

REACTIONS (4)
  - Application site mass [Unknown]
  - Application site pain [Unknown]
  - Underdose [Unknown]
  - Product adhesion issue [Unknown]
